FAERS Safety Report 14076002 (Version 1)
Quarter: 2017Q4

REPORT INFORMATION
  Report Type: Spontaneous
  Country: CA (occurrence: CA)
  Receive Date: 20171011
  Receipt Date: 20171011
  Transmission Date: 20180321
  Serious: Yes (Other)
  Sender: FDA-Public Use
  Company Number: CA-AMGEN-CANSP2017151603

PATIENT
  Age: 63 Year
  Sex: Female
  Weight: 64 kg

DRUGS (16)
  1. ESOMEPRAZOLE MAGNESIUM W/NAPROXEN SODIUM [Concomitant]
  2. KETOCONAZOLE. [Concomitant]
     Active Substance: KETOCONAZOLE
  3. MAGNESIUM [Concomitant]
     Active Substance: MAGNESIUM
  4. OMEPRAZOLE. [Concomitant]
     Active Substance: OMEPRAZOLE
     Dosage: 20 MG, QD
  5. VAGIFEM [Concomitant]
     Active Substance: ESTRADIOL
     Dosage: 10 MUG, UNK
  6. CETIRIZINE [Concomitant]
     Active Substance: CETIRIZINE HYDROCHLORIDE
     Dosage: 20 MG, QD
  7. METFORMIN [Concomitant]
     Active Substance: METFORMIN HYDROCHLORIDE
     Dosage: 500 MG, BID
  8. NYSTATIN. [Concomitant]
     Active Substance: NYSTATIN
     Dosage: 5 ML, BID
  9. QUININE SULFATE. [Concomitant]
     Active Substance: QUININE SULFATE
     Dosage: 300 MG, QD
  10. TYLENOL [Concomitant]
     Active Substance: ACETAMINOPHEN
  11. CALCIUM [Suspect]
     Active Substance: CALCIUM
     Indication: PRODUCT USED FOR UNKNOWN INDICATION
     Route: 065
  12. ERGOCALCIFEROL. [Concomitant]
     Active Substance: ERGOCALCIFEROL
  13. VAXIGRIP [Concomitant]
     Active Substance: INFLUENZA VIRUS VACCINE
  14. AVAMYS [Concomitant]
     Active Substance: FLUTICASONE FUROATE
     Dosage: 27.5 MUG, UNK
  15. ZOSTAVAX [Concomitant]
     Active Substance: VARICELLA-ZOSTER VIRUS STRAIN OKA/MERCK LIVE ANTIGEN
  16. PROLIA [Suspect]
     Active Substance: DENOSUMAB
     Indication: OSTEOPOROSIS
     Route: 058

REACTIONS (10)
  - Tenderness [Not Recovered/Not Resolved]
  - Muscle spasms [Not Recovered/Not Resolved]
  - Pain in extremity [Not Recovered/Not Resolved]
  - Constipation [Not Recovered/Not Resolved]
  - Arthralgia [Not Recovered/Not Resolved]
  - Oral pain [Not Recovered/Not Resolved]
  - Urinary tract infection [Not Recovered/Not Resolved]
  - Oral herpes [Not Recovered/Not Resolved]
  - Aphthous ulcer [Not Recovered/Not Resolved]
  - Nephrolithiasis [Not Recovered/Not Resolved]
